FAERS Safety Report 4317797-1 (Version None)
Quarter: 2004Q1

REPORT INFORMATION
  Report Type: 
  Country: None (occurrence: None)
  Receive Date: 20040312
  Receipt Date: 20040301
  Transmission Date: 20041129
  Serious: Yes (Other)
  Sender: FDA-Public Use
  Company Number: 2004014109

PATIENT
  Sex: Female
  Weight: 113.3993 kg

DRUGS (8)
  1. NEURONTIN [Suspect]
     Indication: CONVULSION
     Dosage: 1800M MG (TID), ORAL
     Route: 048
  2. RANITIDINE HYROCHLORIDE (RANITIDINE HYDROCHLORIDE) [Concomitant]
  3. CLONIDINE [Concomitant]
  4. PHENOBARBITAL TAB [Concomitant]
  5. ATENOLOL [Concomitant]
  6. PREDNISONE [Concomitant]
  7. TOLTERODINE L-TARTRATE (TOLTERODINE L-TARTRATE) [Concomitant]
  8. PAROXETINE HCL [Concomitant]

REACTIONS (7)
  - CONDITION AGGRAVATED [None]
  - HEADACHE [None]
  - MYALGIA [None]
  - PNEUMONIA [None]
  - SLUGGISHNESS [None]
  - STOMACH DISCOMFORT [None]
  - WEIGHT DECREASED [None]
